FAERS Safety Report 19482544 (Version 1)
Quarter: 2021Q3

REPORT INFORMATION
  Report Type: Spontaneous
  Country: US (occurrence: US)
  Receive Date: 20210701
  Receipt Date: 20210701
  Transmission Date: 20211014
  Serious: No
  Sender: FDA-Public Use
  Company Number: US-SA-2021SA214077

PATIENT
  Age: 41 Year
  Sex: Male

DRUGS (6)
  1. CEFALEXIN [Suspect]
     Active Substance: CEPHALEXIN
  2. IBUPROFEN. [Concomitant]
     Active Substance: IBUPROFEN
  3. DUPIXENT [Suspect]
     Active Substance: DUPILUMAB
     Indication: DERMATITIS ATOPIC
     Dosage: 1 DF (300 MG), QOW
     Route: 058
     Dates: start: 20200201
  4. HYDROCODONE/ACETAMINOPHEN [Concomitant]
     Active Substance: ACETAMINOPHEN\HYDROCODONE
  5. TRIAMCINOLONE ACETONIDE. [Concomitant]
     Active Substance: TRIAMCINOLONE ACETONIDE
  6. CETAPHIL [DIMETICONE;GLYCEROL] [Concomitant]

REACTIONS (2)
  - Hernia repair [Unknown]
  - Skin exfoliation [Unknown]

NARRATIVE: CASE EVENT DATE: 20210621
